FAERS Safety Report 10874548 (Version 4)
Quarter: 2015Q2

REPORT INFORMATION
  Report Type: Spontaneous
  Country: US (occurrence: US)
  Receive Date: 20150227
  Receipt Date: 20150622
  Transmission Date: 20150821
  Serious: Yes (Hospitalization, Other)
  Sender: FDA-Public Use
  Company Number: US-BAYER-2015-028088

PATIENT
  Age: 29 Year
  Sex: Female
  Weight: 54.88 kg

DRUGS (1)
  1. MIRENA [Suspect]
     Active Substance: LEVONORGESTREL
     Indication: CONTRACEPTION
     Dosage: 20 MCG/24HR, CONT
     Route: 015
     Dates: start: 20121107, end: 20130207

REACTIONS (14)
  - Ruptured ectopic pregnancy [None]
  - Procedural pain [None]
  - Uterine perforation [None]
  - Emotional distress [None]
  - Device issue [None]
  - General physical health deterioration [None]
  - Fallopian tube perforation [None]
  - Pain [None]
  - Medical device discomfort [None]
  - Ectopic pregnancy with contraceptive device [None]
  - Drug ineffective [None]
  - Asthenia [None]
  - Procedural dizziness [None]
  - Injury [None]

NARRATIVE: CASE EVENT DATE: 2012
